FAERS Safety Report 20353193 (Version 1)
Quarter: 2022Q1

REPORT INFORMATION
  Report Type: Spontaneous
  Country: US (occurrence: US)
  Receive Date: 20220119
  Receipt Date: 20220119
  Transmission Date: 20220424
  Serious: No
  Sender: FDA-Public Use
  Company Number: US-ALKERMES INC.-ALK-2022-000239

PATIENT
  Sex: Female

DRUGS (2)
  1. VIVITROL [Suspect]
     Active Substance: NALTREXONE
     Indication: Dependence
     Dosage: 380 MILLIGRAM, QMO
     Route: 030
     Dates: start: 202112
  2. NALTREXONE [Concomitant]
     Active Substance: NALTREXONE
     Indication: Dependence
     Dosage: UNK
     Route: 065

REACTIONS (1)
  - Substance abuse [Not Recovered/Not Resolved]
